FAERS Safety Report 19368550 (Version 3)
Quarter: 2024Q3

REPORT INFORMATION
  Report Type: Report from Study
  Country: US (occurrence: US)
  Receive Date: 20210602
  Receipt Date: 20240926
  Transmission Date: 20241017
  Serious: Yes (Other)
  Sender: ROCHE
  Company Number: US-ROCHE-2674987

PATIENT
  Age: 32 Year
  Sex: Female
  Weight: 72.57 kg

DRUGS (3)
  1. OCREVUS [Suspect]
     Active Substance: OCRELIZUMAB
     Indication: Relapsing-remitting multiple sclerosis
     Dosage: FULL DOSE?OCREVUS WAS ON 10/MAY/2023.
     Route: 042
     Dates: start: 20190909, end: 202307
  2. ERGOCALCIFEROL [Concomitant]
     Active Substance: ERGOCALCIFEROL
     Route: 048
  3. KESIMPTA [Concomitant]
     Active Substance: OFATUMUMAB

REACTIONS (17)
  - Pancreatic enzymes increased [Not Recovered/Not Resolved]
  - Amylase increased [Unknown]
  - Hypertension [Unknown]
  - Hepatic enzyme increased [Unknown]
  - Upper respiratory tract infection [Recovered/Resolved]
  - Liver function test abnormal [Recovered/Resolved]
  - Hypertension [Not Recovered/Not Resolved]
  - Upper-airway cough syndrome [Recovered/Resolved]
  - Conjunctivitis [Recovered/Resolved]
  - Sinusitis [Recovered/Resolved]
  - Cough [Recovered/Resolved]
  - Sputum discoloured [Not Recovered/Not Resolved]
  - Pharyngeal erythema [Unknown]
  - Purulence [Unknown]
  - Haemophilus infection [Unknown]
  - Blepharitis [Unknown]
  - Immunoglobulins decreased [Unknown]

NARRATIVE: CASE EVENT DATE: 20200903
